FAERS Safety Report 4386766-8 (Version None)
Quarter: 2004Q2

REPORT INFORMATION
  Report Type: 
  Country: None (occurrence: None)
  Receive Date: 20040607
  Receipt Date: 20030715
  Transmission Date: 20050107
  Serious: Yes (Other)
  Sender: FDA-Public Use
  Company Number: 342383

PATIENT
  Age: 13 Year
  Sex: Female

DRUGS (3)
  1. ACCUTANE [Suspect]
     Indication: ACNE
     Dosage: 40 MG 1 PER 2 DAY ORAL
     Route: 048
     Dates: start: 20030215
  2. DILANTIN [Concomitant]
  3. TEGRETOL [Concomitant]

REACTIONS (2)
  - ADVERSE EVENT [None]
  - GRAND MAL CONVULSION [None]
